FAERS Safety Report 21453303 (Version 1)
Quarter: 2022Q4

REPORT INFORMATION
  Report Type: Other
  Country: US (occurrence: None)
  Receive Date: 20221013
  Receipt Date: 20221013
  Transmission Date: 20230113
  Serious: Yes (Other)
  Sender: FDA-Public Use
  Company Number: US-ROCHE-3197760

PATIENT
  Age: 58 Year
  Sex: Female

DRUGS (1)
  1. XELODA [Suspect]
     Active Substance: CAPECITABINE
     Indication: Breast cancer female
     Dosage: TAKE 3 TABLET(S) BY MOUTH EVERY MORNING AND TAKE 2 TABLET(S) BY MOUTH EVERY EVENING 2 WEEK(S) ON, 1
     Route: 048

REACTIONS (3)
  - Rhinorrhoea [Unknown]
  - Lacrimation increased [Unknown]
  - Neoplasm malignant [Unknown]
